APPROVED DRUG PRODUCT: ULTRAGRIS-330
Active Ingredient: GRISEOFULVIN, ULTRAMICROCRYSTALLINE
Strength: 330MG
Dosage Form/Route: TABLET;ORAL
Application: A062646 | Product #001
Applicant: PLIVA INC
Approved: Jun 30, 1992 | RLD: No | RS: No | Type: DISCN